FAERS Safety Report 20775773 (Version 3)
Quarter: 2022Q3

REPORT INFORMATION
  Report Type: Report from Study
  Country: US (occurrence: US)
  Receive Date: 20220502
  Receipt Date: 20220810
  Transmission Date: 20221027
  Serious: Yes (Other)
  Sender: FDA-Public Use
  Company Number: US-CELGENE-USA-20220205656

PATIENT
  Age: 55 Year
  Sex: Female
  Weight: 107.9 kg

DRUGS (2)
  1. ZEPOSIA [Suspect]
     Active Substance: OZANIMOD HYDROCHLORIDE
     Indication: Colitis ulcerative
     Route: 048
     Dates: start: 20220123, end: 20220721
  2. ZEPOSIA [Suspect]
     Active Substance: OZANIMOD HYDROCHLORIDE

REACTIONS (7)
  - Back pain [Unknown]
  - Headache [Unknown]
  - Neuropathy peripheral [Unknown]
  - Cough [Unknown]
  - Bowel movement irregularity [Unknown]
  - Product dose omission issue [Unknown]
  - Peripheral swelling [Unknown]
